FAERS Safety Report 18024060 (Version 6)
Quarter: 2022Q2

REPORT INFORMATION
  Report Type: Report from Study
  Country: US (occurrence: US)
  Receive Date: 20200714
  Receipt Date: 20220527
  Transmission Date: 20220721
  Serious: No
  Sender: FDA-Public Use
  Company Number: NVSC2020US196743

PATIENT
  Age: 1 Year
  Sex: Male

DRUGS (1)
  1. ZOLGENSMA [Suspect]
     Active Substance: ONASEMNOGENE ABEPARVOVEC-XIOI
     Indication: Spinal muscular atrophy
     Dosage: 1.1 MG, ONCE/SINGLE (1.1X10^14VG/KG)
     Route: 042
     Dates: start: 20200320

REACTIONS (7)
  - Respiratory syncytial virus infection [Unknown]
  - Regurgitation [Recovered/Resolved]
  - Laryngeal disorder [Unknown]
  - Pyrexia [Unknown]
  - Sleep disorder [Unknown]
  - Ear infection [Unknown]
  - Eye disorder [Unknown]

NARRATIVE: CASE EVENT DATE: 20210616
